FAERS Safety Report 10984147 (Version 1)
Quarter: 2015Q2

REPORT INFORMATION
  Report Type: Spontaneous
  Country: KR (occurrence: None)
  Receive Date: 20150401
  Receipt Date: 20150401
  Transmission Date: 20150821
  Serious: Yes (Death)
  Sender: FDA-Public Use
  Company Number: KR--FTV20140508-01

PATIENT
  Age: 70 Year
  Sex: Female

DRUGS (5)
  1. ANICOUGH [Concomitant]
  2. MUCOPECT [Concomitant]
  3. TYLENOL ER [Concomitant]
     Active Substance: ACETAMINOPHEN
  4. LEVOTUSS [Concomitant]
     Active Substance: LEVODROPROPIZINE
  5. FACTIVE [Suspect]
     Active Substance: GEMIFLOXACIN MESYLATE
     Indication: PNEUMONIA
     Route: 048
     Dates: start: 20140214, end: 20140214

REACTIONS (1)
  - Myocardial infarction [None]

NARRATIVE: CASE EVENT DATE: 20140214
